FAERS Safety Report 6440974-0 (Version None)
Quarter: 2009Q4

REPORT INFORMATION
  Report Type: 
  Country: None (occurrence: None)
  Receive Date: 20091116
  Receipt Date: 20091104
  Transmission Date: 20100525
  Serious: Yes (Disabling)
  Sender: FDA-Public Use
  Company Number: ZA-BAYER-200938553GPV

PATIENT
  Age: 40 Year
  Sex: Female
  Weight: 52 kg

DRUGS (1)
  1. YAZ [Suspect]
     Indication: CONTRACEPTION
     Route: 048
     Dates: start: 20090821, end: 20091019

REACTIONS (4)
  - ACNE [None]
  - HEADACHE [None]
  - INSOMNIA [None]
  - VISION BLURRED [None]
